FAERS Safety Report 4730951-X (Version None)
Quarter: 2005Q3

REPORT INFORMATION
  Report Type: 
  Country: None (occurrence: None)
  Receive Date: 20050719
  Receipt Date: 20040628
  Transmission Date: 20060218
  Serious: Yes (Other)
  Sender: FDA-Public Use
  Company Number: 200672

PATIENT
  Age: 41 Year
  Sex: Female
  Weight: 98.8842 kg

DRUGS (5)
  1. AVONEX [Suspect]
     Indication: MULTIPLE SCLEROSIS
     Dosage: 30 UG;QW; IM
     Route: 030
     Dates: start: 20040505, end: 20040519
  2. AVONEX [Suspect]
     Indication: MULTIPLE SCLEROSIS
     Dosage: 30 UG;QW; IM
     Route: 030
     Dates: start: 20040602
  3. COZAAR [Concomitant]
  4. KLONOPIN [Concomitant]
  5. DILANTIN [Concomitant]

REACTIONS (11)
  - ARTHRALGIA [None]
  - CONVULSION [None]
  - DYSPNOEA [None]
  - FEELING COLD [None]
  - FEELING HOT [None]
  - INJECTION SITE ERYTHEMA [None]
  - MYALGIA [None]
  - PHARYNGITIS STREPTOCOCCAL [None]
  - RASH ERYTHEMATOUS [None]
  - SINUS BRADYCARDIA [None]
  - WHEEZING [None]
